FAERS Safety Report 14176472 (Version 1)
Quarter: 2017Q4

REPORT INFORMATION
  Report Type: Spontaneous
  Country: FR (occurrence: FR)
  Receive Date: 20171109
  Receipt Date: 20171109
  Transmission Date: 20180321
  Serious: Yes (Other)
  Sender: FDA-Public Use
  Company Number: FR-MERCK KGAA-2033763

PATIENT
  Age: 69 Year
  Sex: Female

DRUGS (1)
  1. NOVOTHYROX [Suspect]
     Active Substance: LEVOTHYROXINE SODIUM
     Indication: POST PROCEDURAL HYPOTHYROIDISM
     Dates: start: 201704

REACTIONS (10)
  - Intestinal obstruction [None]
  - Muscle spasms [None]
  - Somnolence [None]
  - Insomnia [None]
  - Alopecia [None]
  - Dry mouth [None]
  - Constipation [None]
  - Musculoskeletal pain [None]
  - Poor quality sleep [None]
  - Nausea [None]

NARRATIVE: CASE EVENT DATE: 2017
